FAERS Safety Report 5062162-5 (Version None)
Quarter: 2006Q3

REPORT INFORMATION
  Report Type: 
  Country: None (occurrence: None)
  Receive Date: 20060703
  Receipt Date: 20051011
  Transmission Date: 20061208
  Serious: No
  Sender: FDA-Public Use
  Company Number: 2005S1010062

PATIENT
  Age: 42 Year
  Sex: Male

DRUGS (19)
  1. CLOZAPINE [Suspect]
     Indication: SCHIZOPHRENIA, PARANOID TYPE
     Dosage: SEE IMAGE
     Route: 048
     Dates: start: 20000601
  2. CLOZAPINE [Suspect]
     Indication: SCHIZOPHRENIA, PARANOID TYPE
     Dosage: SEE IMAGE
     Route: 048
     Dates: start: 20000601
  3. OLANZAPINE [Concomitant]
  4. RABEPRAZOLE SODIUM [Concomitant]
  5. VALPROATE SODIUM [Concomitant]
  6. TAMSULOSIN HYDROCHLORIDE [Concomitant]
  7. SIMVASTATIN [Concomitant]
  8. POTASSIUM CHLORIDE [Concomitant]
  9. FAMOTIDINE [Concomitant]
  10. CANDESARTAN CILEXETIL [Concomitant]
  11. OXYBUTYNIN HYDROCHLORIDE [Concomitant]
  12. LEVOTHYROXINE SODIUM [Concomitant]
  13. NICOTINIC ACID [Concomitant]
  14. ACETYLSALICYLIC ACID SRT [Concomitant]
  15. HYDROCHLOROTHIAZIDE [Concomitant]
  16. COLESEVELAM HYDROCHLORIDE [Concomitant]
  17. LACTULOSE [Concomitant]
  18. IBUPROFEN [Concomitant]
  19. BETAMETHASONE BIPROPIONATE/CLOTRIMAZOLE [Concomitant]

REACTIONS (1)
  - GRANULOCYTOPENIA [None]
